FAERS Safety Report 4307341-7 (Version None)
Quarter: 2004Q1

REPORT INFORMATION
  Report Type: 
  Country: None (occurrence: None)
  Receive Date: 20040226
  Receipt Date: 20040211
  Transmission Date: 20041129
  Serious: Yes (Other)
  Sender: FDA-Public Use
  Company Number: K200400203

PATIENT
  Age: 61 Year
  Sex: Female
  Weight: 74.8 kg

DRUGS (6)
  1. LEVOXYL [Suspect]
     Indication: HYPOTHYROIDISM
     Dosage: 100 MCG, QD, ORAL
     Route: 048
     Dates: start: 20040208
  2. PREMARIN [Concomitant]
  3. PROVERA [Concomitant]
  4. FLONASE [Concomitant]
  5. CLARITIN [Concomitant]
  6. SUDAFED 12 HOUR [Concomitant]

REACTIONS (4)
  - NAUSEA [None]
  - SWOLLEN TONGUE [None]
  - TONGUE BLISTERING [None]
  - WEIGHT INCREASED [None]
